FAERS Safety Report 7861752-1 (Version None)
Quarter: 2011Q4

REPORT INFORMATION
  Report Type: 
  Country: None (occurrence: None)
  Receive Date: 20111027
  Receipt Date: 20111017
  Transmission Date: 20120403
  Serious: Yes (Hospitalization, Other)
  Sender: FDA-Public Use
  Company Number: US-ROCHE-792085

PATIENT
  Sex: Female
  Weight: 49.94 kg

DRUGS (1)
  1. ACCUTANE [Suspect]
     Indication: ACNE
     Route: 065
     Dates: start: 19860301, end: 19860601

REACTIONS (7)
  - PANCREATITIS [None]
  - PANIC ATTACK [None]
  - INFLAMMATORY BOWEL DISEASE [None]
  - ILEUS [None]
  - CROHN'S DISEASE [None]
  - DEPRESSION [None]
  - RECTAL FISSURE [None]
